FAERS Safety Report 10429661 (Version 3)
Quarter: 2014Q4

REPORT INFORMATION
  Report Type: Spontaneous
  Country: CN (occurrence: CN)
  Receive Date: 20140904
  Receipt Date: 20141015
  Transmission Date: 20150528
  Serious: Yes (Hospitalization)
  Sender: FDA-Public Use
  Company Number: PHHY2014CN109244

PATIENT
  Age: 62 Year
  Sex: Female

DRUGS (1)
  1. LESCOL [Suspect]
     Active Substance: FLUVASTATIN SODIUM
     Indication: PRODUCT USED FOR UNKNOWN INDICATION
     Dosage: 80 MG, QD
     Route: 048
     Dates: end: 201408

REACTIONS (6)
  - Myocardial necrosis marker increased [Recovering/Resolving]
  - Myalgia [Recovering/Resolving]
  - Asthenia [Recovering/Resolving]
  - Transaminases increased [Unknown]
  - Myositis [Unknown]
  - Weight decreased [Unknown]

NARRATIVE: CASE EVENT DATE: 201406
